FAERS Safety Report 6079662-1 (Version None)
Quarter: 2009Q1

REPORT INFORMATION
  Report Type: 
  Country: None (occurrence: None)
  Receive Date: 20090211
  Receipt Date: 20090127
  Transmission Date: 20090719
  Serious: Yes (Hospitalization, Other)
  Sender: FDA-Public Use
  Company Number: 2008S1011886

PATIENT
  Age: 74 Year
  Sex: Female

DRUGS (1)
  1. AMIODARONE HCL [Suspect]
     Indication: ATRIAL FIBRILLATION
     Dosage: 200 MG; TWICE A DAY; ORAL
     Route: 048

REACTIONS (9)
  - CREPITATIONS [None]
  - DYSPNOEA [None]
  - HYPOXIA [None]
  - LUNG INFILTRATION [None]
  - PULMONARY TOXICITY [None]
  - PYREXIA [None]
  - RESPIRATORY DISTRESS [None]
  - SKIN DISCOLOURATION [None]
  - WEIGHT DECREASED [None]
